FAERS Safety Report 21702172 (Version 1)
Quarter: 2022Q4

REPORT INFORMATION
  Report Type: Report from Study
  Country: US (occurrence: US)
  Receive Date: 20221208
  Receipt Date: 20221208
  Transmission Date: 20230112
  Serious: Yes (Other)
  Sender: FDA-Public Use
  Company Number: US-BRISTOL-MYERS SQUIBB COMPANY-2022-127782

PATIENT
  Age: 77 Year
  Sex: Male

DRUGS (2)
  1. ZEPOSIA [Suspect]
     Active Substance: OZANIMOD HYDROCHLORIDE
     Indication: Colitis ulcerative
     Route: 048
  2. ZEPOSIA [Suspect]
     Active Substance: OZANIMOD HYDROCHLORIDE
     Dosage: 0.23-0.92 MG
     Route: 048
     Dates: start: 20221121

REACTIONS (6)
  - Neck pain [Unknown]
  - Musculoskeletal stiffness [Unknown]
  - Haemorrhage [Unknown]
  - Condition aggravated [Unknown]
  - Hiatus hernia [Unknown]
  - Groin pain [Unknown]

NARRATIVE: CASE EVENT DATE: 20221126
